FAERS Safety Report 6908952-2 (Version None)
Quarter: 2010Q3

REPORT INFORMATION
  Report Type: 
  Country: None (occurrence: None)
  Receive Date: 20100708
  Receipt Date: 20090820
  Transmission Date: 20110219
  Serious: Yes (Other)
  Sender: FDA-Public Use
  Company Number: 2009261748

PATIENT
  Age: 84 Year
  Sex: Female
  Weight: 55.8 kg

DRUGS (2)
  1. CHANTIX [Suspect]
     Indication: SMOKING CESSATION THERAPY
     Dosage: 0.5 MG, 1X/DAY
     Dates: start: 20090818, end: 20090820
  2. VALSARTAN [Concomitant]

REACTIONS (5)
  - ABDOMINAL PAIN UPPER [None]
  - MALAISE [None]
  - SUICIDAL IDEATION [None]
  - UNEVALUABLE EVENT [None]
  - VOMITING [None]
